FAERS Safety Report 15575979 (Version 2)
Quarter: 2018Q4

REPORT INFORMATION
  Report Type: Spontaneous
  Country: IT (occurrence: IT)
  Receive Date: 20181101
  Receipt Date: 20181210
  Transmission Date: 20190205
  Serious: Yes (Other)
  Sender: FDA-Public Use
  Company Number: IT-OTSUKA-2018_034924

PATIENT
  Age: 7 Year
  Sex: Male
  Weight: 33 kg

DRUGS (4)
  1. ZARONTIN [Suspect]
     Active Substance: ETHOSUXIMIDE
     Dosage: UNK (6 ML IN MORNING+5ML IN EVENING)
     Route: 065
  2. DEPAKIN [Suspect]
     Active Substance: VALPROATE SODIUM
     Indication: EPILEPSY
     Dosage: 1300 MG, QD
     Route: 048
     Dates: start: 20180101, end: 20180920
  3. ABILIFY [Suspect]
     Active Substance: ARIPIPRAZOLE
     Indication: EPILEPSY
     Dosage: 250 ML, QD
     Route: 048
     Dates: start: 20180101, end: 20180920
  4. ZARONTIN [Suspect]
     Active Substance: ETHOSUXIMIDE
     Indication: PETIT MAL EPILEPSY
     Dosage: 10 ML, QD
     Route: 048
     Dates: start: 20180101, end: 20180920

REACTIONS (3)
  - Product use in unapproved indication [Unknown]
  - Petit mal epilepsy [Recovering/Resolving]
  - Product administered to patient of inappropriate age [Unknown]

NARRATIVE: CASE EVENT DATE: 20180920
